FAERS Safety Report 6440803-5 (Version None)
Quarter: 2009Q4

REPORT INFORMATION
  Report Type: 
  Country: None (occurrence: None)
  Receive Date: 20091116
  Receipt Date: 20091105
  Transmission Date: 20100525
  Serious: Yes (Other)
  Sender: FDA-Public Use
  Company Number: US-JNJFOC-20091102317

PATIENT
  Age: 25 Year
  Sex: Female
  Weight: 52.16 kg

DRUGS (3)
  1. TOPAMAX [Suspect]
     Indication: NEURALGIA
     Route: 048
     Dates: start: 20091103, end: 20091103
  2. OXYCODONE [Concomitant]
     Route: 048
  3. OXYCODONE [Concomitant]
     Indication: ANALGESIC THERAPY
     Route: 048

REACTIONS (7)
  - ABNORMAL DREAMS [None]
  - DIZZINESS [None]
  - DROOLING [None]
  - DYSGEUSIA [None]
  - EYE MOVEMENT DISORDER [None]
  - HYPOAESTHESIA [None]
  - LOSS OF CONSCIOUSNESS [None]
